FAERS Safety Report 12762606 (Version 3)
Quarter: 2016Q4

REPORT INFORMATION
  Report Type: Report from Study
  Country: US (occurrence: US)
  Receive Date: 20160920
  Receipt Date: 20161101
  Transmission Date: 20170207
  Serious: Yes (Hospitalization, Other)
  Sender: FDA-Public Use
  Company Number: US-BAYER-2016-177688

PATIENT
  Age: 70 Year
  Sex: Female

DRUGS (4)
  1. STIVARGA [Suspect]
     Active Substance: REGORAFENIB
     Indication: COLORECTAL CANCER
     Dosage: 80 MG, QD
     Route: 048
  2. STIVARGA [Suspect]
     Active Substance: REGORAFENIB
     Indication: COLORECTAL CANCER
     Dosage: 80 MG, QD
     Route: 048
     Dates: start: 201606, end: 2016
  3. STIVARGA [Suspect]
     Active Substance: REGORAFENIB
     Indication: COLORECTAL CANCER
     Dosage: 80 MG, QD
     Route: 048
     Dates: start: 201607, end: 20160817
  4. STIVARGA [Suspect]
     Active Substance: REGORAFENIB
     Indication: COLORECTAL CANCER
     Dosage: 120 MG, QD
     Route: 048
     Dates: start: 20160822

REACTIONS (10)
  - Skin disorder [None]
  - Gait disturbance [Recovering/Resolving]
  - Somnolence [None]
  - Speech disorder [None]
  - Gait disturbance [Recovering/Resolving]
  - Mobility decreased [Recovering/Resolving]
  - Abdominal pain [None]
  - Intentional product misuse [None]
  - Limb discomfort [Recovering/Resolving]
  - Hospitalisation [None]

NARRATIVE: CASE EVENT DATE: 201608
